FAERS Safety Report 4841092-5 (Version None)
Quarter: 2005Q4

REPORT INFORMATION
  Report Type: 
  Country: None (occurrence: None)
  Receive Date: 20051130
  Receipt Date: 20050923
  Transmission Date: 20060501
  Serious: Yes (Hospitalization)
  Sender: FDA-Public Use
  Company Number: US-BRISTOL-MYERS SQUIBB COMPANY-13119862

PATIENT
  Age: 46 Year
  Sex: Male
  Weight: 86 kg

DRUGS (4)
  1. ABILIFY [Suspect]
     Indication: BIPOLAR DISORDER
     Dosage: ON 15-SEPTEMBER-2005, THE ORIGINAL DOSE OF ARIPIPRAZOLE WAS DOUBLED.
     Route: 048
     Dates: start: 20050905, end: 20050919
  2. PROPANOLOL HYDROCHLORIDE [Concomitant]
  3. LITHIUM [Concomitant]
  4. ATIVAN [Concomitant]

REACTIONS (2)
  - AGITATION [None]
  - PARAESTHESIA [None]
